FAERS Safety Report 4937000-9 (Version None)
Quarter: 2006Q1

REPORT INFORMATION
  Report Type: 
  Country: None (occurrence: None)
  Receive Date: 20060309
  Receipt Date: 20050906
  Transmission Date: 20060701
  Serious: Yes (Hospitalization, Other)
  Sender: FDA-Public Use
  Company Number: DE-ABBOTT-05P-062-0310534-00

PATIENT
  Sex: Female
  Weight: 45 kg

DRUGS (5)
  1. HUMIRA [Suspect]
     Indication: RHEUMATOID ARTHRITIS
     Route: 058
     Dates: start: 20050202, end: 20050913
  2. HUMIRA [Suspect]
     Route: 058
     Dates: start: 20051101
  3. METHOTREXATE [Concomitant]
     Indication: RHEUMATOID ARTHRITIS
     Route: 048
     Dates: start: 19910204
  4. IBUPROFEN [Concomitant]
     Indication: RHEUMATOID ARTHRITIS
     Route: 048
     Dates: start: 20050214
  5. ALENDRONATE SODIUM [Concomitant]
     Indication: OSTEOPOROSIS
     Dates: start: 20020226

REACTIONS (2)
  - MEDICAL DEVICE COMPLICATION [None]
  - MONARTHRITIS [None]
